FAERS Safety Report 4950104-X (Version None)
Quarter: 2006Q1

REPORT INFORMATION
  Report Type: 
  Country: None (occurrence: None)
  Receive Date: 20060320
  Receipt Date: 20060320
  Transmission Date: 20060701
  Serious: Yes (Life-Threatening, Hospitalization, Disabling)
  Sender: FDA-Public Use
  Company Number: None

PATIENT
  Age: 81 Year
  Sex: Female
  Weight: 49.8957 kg

DRUGS (1)
  1. HERCEPTIN [Suspect]
     Indication: BREAST CANCER METASTATIC
     Dosage: IV
     Route: 042
     Dates: start: 20050501, end: 20060101

REACTIONS (5)
  - BRAIN DAMAGE [None]
  - BRAIN HYPOXIA [None]
  - COMA [None]
  - CONVULSION [None]
  - PULMONARY OEDEMA [None]
